FAERS Safety Report 10572668 (Version 1)
Quarter: 2014Q4

REPORT INFORMATION
  Report Type: Spontaneous
  Country: FR (occurrence: None)
  Receive Date: 20141106
  Receipt Date: 20141106
  Transmission Date: 20150529
  Serious: Yes (Hospitalization)
  Sender: FDA-Public Use
  Company Number: 7330157

PATIENT
  Age: 78 Year
  Sex: Female

DRUGS (8)
  1. PREVISCAN /00261401/ (PENTOXIFYLINE) (20 MG, TABLET)  (PENTOXIFYLINE) [Concomitant]
  2. ALLOPURINOL (ALLOPURINOL) (ALLOPURINOL) [Concomitant]
     Active Substance: ALLOPURINOL
  3. KEPPRA (LEVETIRACETAM) (LEVETIRACETAM) [Concomitant]
  4. CORDARONE [Suspect]
     Active Substance: AMIODARONE HYDROCHLORIDE
     Indication: PRODUCT USED FOR UNKNOWN INDICATION
     Dosage: (1 DF)
     Route: 048
     Dates: start: 20140513, end: 20140522
  5. TAHOR (ATORVASTATIN CALCIUM) (ATORVASTATIN CALCIUM) [Concomitant]
  6. LEVOTHYROX (LEVOTHYROXINE SODIUM) (100 MICROGRAM, TABLET) (LEVOTHYROXINE SODIUM) [Suspect]
     Active Substance: LEVOTHYROXINE
     Indication: HYPOTHYROIDISM
     Dosage: SCORED TABLET (LONG TERM TREATMENT)
     Route: 048
     Dates: end: 20140524
  7. TEMERIT /01339101/ (NEBIVOLOL) (5MG) (NEBIVOLOL) [Concomitant]
  8. INEXIUM /01479302/ (ESOMEPRAZOLE MAGNESIUM) (ESOMEPRAZOLE MAGNESIUM) [Concomitant]
     Active Substance: ESOMEPRAZOLE MAGNESIUM

REACTIONS (3)
  - Confusional state [None]
  - Tri-iodothyronine decreased [None]
  - Blood thyroid stimulating hormone decreased [None]

NARRATIVE: CASE EVENT DATE: 20140521
